FAERS Safety Report 21097282 (Version 1)
Quarter: 2022Q3

REPORT INFORMATION
  Report Type: Report from Study
  Country: US (occurrence: US)
  Receive Date: 20220719
  Receipt Date: 20220719
  Transmission Date: 20221027
  Serious: Yes (Hospitalization, Other)
  Sender: FDA-Public Use
  Company Number: US-BRISTOL-MYERS SQUIBB COMPANY-2022-070762

PATIENT
  Age: 69 Year
  Sex: Male
  Weight: 54.88 kg

DRUGS (3)
  1. REVLIMID [Suspect]
     Active Substance: LENALIDOMIDE
     Indication: Plasma cell myeloma
     Dosage: 14 OUT OF 21 DAYS
     Route: 048
     Dates: start: 20210512
  2. DEXAMETHASONE [Concomitant]
     Active Substance: DEXAMETHASONE
     Indication: Product used for unknown indication
     Route: 065
  3. ASPIRIN [Concomitant]
     Active Substance: ASPIRIN
     Indication: Product used for unknown indication
     Route: 065

REACTIONS (10)
  - Hypertension [Unknown]
  - Respiratory disorder [Unknown]
  - Infection [Unknown]
  - Pneumonia [Unknown]
  - Feeding disorder [Unknown]
  - Diarrhoea [Unknown]
  - Eye disorder [Unknown]
  - Pupillary disorder [Unknown]
  - Pyrexia [Unknown]
  - Off label use [Unknown]

NARRATIVE: CASE EVENT DATE: 20220621
